FAERS Safety Report 6064651 (Version 11)
Quarter: 2013Q3

REPORT INFORMATION
  Report Type: Spontaneous
  Country: US (occurrence: US)
  Receive Date: 20060614
  Receipt Date: 20130731
  Transmission Date: 20140515
  Serious: Yes (Death, Other)
  Sender: FDA-Public Use
  Company Number: PHEH2006US07276

PATIENT
  Age: 57 Year
  Sex: Female

DRUGS (1)
  1. ZOMETA [Suspect]
     Indication: METASTASES TO BONE
     Dates: end: 200604

REACTIONS (93)
  - Death [Fatal]
  - Osteonecrosis of jaw [Unknown]
  - General physical health deterioration [Unknown]
  - Pain [Unknown]
  - Anxiety [Unknown]
  - Decreased interest [Unknown]
  - Spinal osteoarthritis [Unknown]
  - Pleural effusion [Unknown]
  - Lung consolidation [Unknown]
  - Joint injury [Unknown]
  - Fall [Unknown]
  - Femur fracture [Unknown]
  - Sacroiliitis [Unknown]
  - Osteoarthritis [Unknown]
  - Hypertrophy [Unknown]
  - Neck pain [Unknown]
  - Abdominal pain [Unknown]
  - Musculoskeletal pain [Unknown]
  - Chest pain [Unknown]
  - Hypertension [Unknown]
  - Ascites [Unknown]
  - Splenomegaly [Unknown]
  - Metastases to lung [Unknown]
  - Bronchitis [Unknown]
  - Arthritis [Unknown]
  - Hepatic calcification [Unknown]
  - Wolff-Parkinson-White syndrome [Unknown]
  - Exposed bone in jaw [Unknown]
  - Discomfort [Unknown]
  - Primary sequestrum [Unknown]
  - Fungal infection [Unknown]
  - Umbilical hernia [Unknown]
  - Osteoporosis [Unknown]
  - Contusion [Unknown]
  - Pruritus [Unknown]
  - Memory impairment [Unknown]
  - Jaundice [Unknown]
  - Atelectasis [Unknown]
  - Bone lesion [Unknown]
  - Cardiomegaly [Unknown]
  - Bone callus excessive [Unknown]
  - Lumbar vertebral fracture [Unknown]
  - Spinal deformity [Unknown]
  - Portal vein thrombosis [Unknown]
  - Cerebral small vessel ischaemic disease [Unknown]
  - Hepatic cirrhosis [Unknown]
  - Osteosclerosis [Unknown]
  - Interstitial lung disease [Unknown]
  - Type 2 diabetes mellitus [Unknown]
  - Dyspareunia [Unknown]
  - Hepatic neoplasm [Unknown]
  - Gangrene [Unknown]
  - Hepatomegaly [Unknown]
  - Thrombocytopenia [Unknown]
  - Mucosal inflammation [Unknown]
  - Leukopenia [Unknown]
  - Anaemia [Unknown]
  - Carpal tunnel syndrome [Unknown]
  - Pharyngitis [Unknown]
  - Anogenital warts [Unknown]
  - Tooth abscess [Unknown]
  - Sinusitis [Unknown]
  - Respiratory tract infection [Unknown]
  - Pleuritic pain [Unknown]
  - Hip fracture [Unknown]
  - Melanosis coli [Unknown]
  - Colon adenoma [Unknown]
  - Rectal cancer [Unknown]
  - Gastritis [Unknown]
  - Skin cancer [Unknown]
  - Asthma [Unknown]
  - Pancytopenia [Unknown]
  - Oesophageal ulcer [Unknown]
  - Second primary malignancy [Unknown]
  - Tongue ulceration [Unknown]
  - Mouth ulceration [Unknown]
  - Neutropenia [Unknown]
  - Oral candidiasis [Unknown]
  - Hypoalbuminaemia [Unknown]
  - Stomatitis [Unknown]
  - Febrile neutropenia [Unknown]
  - Blister [Unknown]
  - Depression [Unknown]
  - Malignant ascites [Unknown]
  - Confusional state [Unknown]
  - Dizziness [Unknown]
  - Gastrointestinal haemorrhage [Unknown]
  - Haematemesis [Unknown]
  - Haemoptysis [Unknown]
  - Dehydration [Unknown]
  - Insomnia [Unknown]
  - Portal hypertension [Unknown]
  - Arthralgia [Unknown]
